FAERS Safety Report 10437000 (Version 1)
Quarter: 2014Q3

REPORT INFORMATION
  Report Type: Spontaneous
  Country: US (occurrence: US)
  Receive Date: 20140908
  Receipt Date: 20140908
  Transmission Date: 20150326
  Serious: Yes (Hospitalization)
  Sender: FDA-Public Use
  Company Number: US-BRISTOL-MYERS SQUIBB COMPANY-20828034

PATIENT
  Age: 55 Year
  Sex: Female

DRUGS (1)
  1. ABILIFY [Suspect]
     Active Substance: ARIPIPRAZOLE
     Indication: DEPRESSION
     Dates: start: 201212, end: 201308

REACTIONS (3)
  - Anxiety [Recovering/Resolving]
  - Somnolence [Recovering/Resolving]
  - Weight decreased [Recovering/Resolving]
